FAERS Safety Report 11180530 (Version 2)
Quarter: 2015Q3

REPORT INFORMATION
  Report Type: Spontaneous
  Country: US (occurrence: US)
  Receive Date: 20150611
  Receipt Date: 20150720
  Transmission Date: 20151125
  Serious: No
  Sender: FDA-Public Use
  Company Number: US-PFIZER INC-2015191244

PATIENT
  Age: 45 Year
  Sex: Male
  Weight: 91 kg

DRUGS (8)
  1. TAMSULOSIN [Concomitant]
     Active Substance: TAMSULOSIN
     Indication: MICTURITION DISORDER
     Dosage: 0.4 MG, UNK
  2. VIAGRA [Suspect]
     Active Substance: SILDENAFIL CITRATE
     Dosage: 50 MG, AS NEEDED (50 MG ONE TIME A DAY NOT REGULARLY BUT AS NEEDED)
     Dates: start: 2015
  3. LORAZEPAM. [Concomitant]
     Active Substance: LORAZEPAM
     Indication: PAIN
  4. LYRICA [Suspect]
     Active Substance: PREGABALIN
     Indication: NEURALGIA
     Dosage: 750 MG, 1X/DAY
     Dates: start: 2012
  5. NEXIUM [Concomitant]
     Active Substance: ESOMEPRAZOLE MAGNESIUM
     Indication: GASTRIC HAEMORRHAGE
     Dosage: 40 MG, UNK
     Dates: start: 2012
  6. PROZAC [Concomitant]
     Active Substance: FLUOXETINE HYDROCHLORIDE
     Indication: DEPRESSION
     Dosage: 40 MG, 1X/DAY
     Dates: start: 2012
  7. RISPERIDONE. [Concomitant]
     Active Substance: RISPERIDONE
     Indication: DISABILITY
     Dosage: 2 MG, 1X/DAY
  8. LORAZEPAM. [Concomitant]
     Active Substance: LORAZEPAM
     Indication: ANXIETY
     Dosage: 2 MG, 3X/DAY

REACTIONS (6)
  - Hyperhidrosis [Unknown]
  - Prescribed overdose [Unknown]
  - Feeling hot [Unknown]
  - Vomiting [Unknown]
  - Influenza [Unknown]
  - Drug withdrawal syndrome [Unknown]
